FAERS Safety Report 4459327-X (Version None)
Quarter: 2004Q3

REPORT INFORMATION
  Report Type: 
  Country: None (occurrence: None)
  Receive Date: 20040927
  Receipt Date: 20030317
  Transmission Date: 20050211
  Serious: Yes (Hospitalization, Disabling, Other)
  Sender: FDA-Public Use
  Company Number: US-MERCK-0303USA01603

PATIENT
  Age: 47 Year
  Sex: Male
  Weight: 89 kg

DRUGS (5)
  1. PROPACET 100 [Concomitant]
     Indication: PAIN
     Route: 065
  2. WELLBUTRIN [Concomitant]
     Indication: EX-SMOKER
     Route: 065
     Dates: start: 19980101, end: 20010101
  3. PREVACID [Concomitant]
     Route: 065
  4. VIOXX [Suspect]
     Indication: ARTHRALGIA
     Route: 048
     Dates: start: 20001009, end: 20010516
  5. VIOXX [Suspect]
     Indication: NECK PAIN
     Route: 048
     Dates: start: 20001009, end: 20010516

REACTIONS (51)
  - ABDOMINAL PAIN [None]
  - ACUTE MYOCARDIAL INFARCTION [None]
  - ANGINA PECTORIS [None]
  - ANXIETY [None]
  - BACK INJURY [None]
  - BLOOD PRESSURE SYSTOLIC DECREASED [None]
  - CARDIAC ARREST [None]
  - CARDIAC DISORDER [None]
  - CARDIAC FAILURE CONGESTIVE [None]
  - CARDIOMEGALY [None]
  - CHEST PAIN [None]
  - CORONARY ARTERY DISEASE [None]
  - CORONARY ARTERY OCCLUSION [None]
  - CORONARY ARTERY RESTENOSIS [None]
  - DIPLOPIA [None]
  - DIVERTICULITIS [None]
  - DIZZINESS [None]
  - DYSPNOEA [None]
  - ERYTHEMA [None]
  - GASTROOESOPHAGEAL REFLUX DISEASE [None]
  - HAEMATEMESIS [None]
  - HAEMATOMA [None]
  - HIATUS HERNIA [None]
  - HYPERLIPIDAEMIA [None]
  - HYPERSENSITIVITY [None]
  - HYPERTENSION [None]
  - LACTOSE INTOLERANCE [None]
  - MITRAL VALVE DISEASE [None]
  - MUSCLE CONTRACTIONS INVOLUNTARY [None]
  - MYALGIA [None]
  - NECROSIS [None]
  - NON-CARDIAC CHEST PAIN [None]
  - OEDEMA [None]
  - OSTEOARTHRITIS [None]
  - POSTOPERATIVE INFECTION [None]
  - PROCEDURAL SITE REACTION [None]
  - PULMONARY OEDEMA [None]
  - PURULENCE [None]
  - RETROPERITONEAL HAEMORRHAGE [None]
  - SLEEP DISORDER [None]
  - STENT OCCLUSION [None]
  - SYNCOPE [None]
  - TENDON RUPTURE [None]
  - TENDONITIS [None]
  - TINNITUS [None]
  - URTICARIA [None]
  - VENTRICULAR EXTRASYSTOLES [None]
  - VENTRICULAR FIBRILLATION [None]
  - VISION BLURRED [None]
  - VISUAL ACUITY REDUCED [None]
  - WHEEZING [None]
